FAERS Safety Report 5555166-7 (Version None)
Quarter: 2007Q4

REPORT INFORMATION
  Report Type: 
  Country: None (occurrence: None)
  Receive Date: 20071213
  Receipt Date: 20071204
  Transmission Date: 20080405
  Serious: Yes (Hospitalization, Other)
  Sender: FDA-Public Use
  Company Number: JP-ASTRAZENECA-2007AP07292

PATIENT
  Age: 887 Month
  Sex: Male

DRUGS (6)
  1. ZOLADEX [Suspect]
     Indication: PROSTATE CANCER
     Route: 058
     Dates: start: 20070329, end: 20070913
  2. LEUPROLIDE ACETATE [Concomitant]
     Indication: PROSTATE CANCER
     Dates: start: 20071011
  3. PAXIL [Concomitant]
     Indication: HOT FLUSH
     Route: 048
     Dates: start: 20070516, end: 20070913
  4. ALLEGRA [Concomitant]
     Indication: PRURITUS
     Route: 048
     Dates: start: 20070524, end: 20070913
  5. BAYMYCARD [Concomitant]
     Indication: HYPERTENSION
     Route: 048
  6. NU-LOTAN [Concomitant]
     Indication: HYPERTENSION
     Route: 048

REACTIONS (7)
  - ALANINE AMINOTRANSFERASE INCREASED [None]
  - ASPARTATE AMINOTRANSFERASE INCREASED [None]
  - BLOOD ALKALINE PHOSPHATASE INCREASED [None]
  - LIVER DISORDER [None]
  - PRURITUS GENERALISED [None]
  - PYREXIA [None]
  - RASH [None]
